FAERS Safety Report 6215489-5 (Version None)
Quarter: 2009Q2

REPORT INFORMATION
  Report Type: 
  Country: None (occurrence: None)
  Receive Date: 20090603
  Receipt Date: 20090518
  Transmission Date: 20091009
  Serious: Yes (Other)
  Sender: FDA-Public Use
  Company Number: 2009-0665

PATIENT
  Age: 57 Year
  Sex: Female

DRUGS (1)
  1. SOMATULINE AUTOGEL 120MG (LANREOTIDE) (LANREOTIDE ACETATE) [Suspect]
     Indication: NEUROENDOCRINE TUMOUR
     Dosage: 120 MG
     Dates: start: 20081201

REACTIONS (2)
  - ASTHMA [None]
  - LARYNGITIS [None]
